FAERS Safety Report 25755146 (Version 1)
Quarter: 2025Q3

REPORT INFORMATION
  Report Type: Report from Study
  Country: US (occurrence: US)
  Receive Date: 20250903
  Receipt Date: 20250903
  Transmission Date: 20251021
  Serious: No
  Sender: SUNOVION
  Company Number: US-SUMITOMO PHARMA SWITZERLAND GMBH-2025SPA011074

PATIENT
  Age: 85 Year
  Sex: Male

DRUGS (9)
  1. ORGOVYX [Suspect]
     Active Substance: RELUGOLIX
     Indication: Prostate cancer
     Route: 048
     Dates: start: 20250625, end: 20250625
  2. ORGOVYX [Suspect]
     Active Substance: RELUGOLIX
     Route: 048
  3. GABAPENTIN [Concomitant]
     Active Substance: GABAPENTIN
  4. DONEPEZIL [Concomitant]
     Active Substance: DONEPEZIL
  5. LANSOPRAZOLE [Concomitant]
     Active Substance: LANSOPRAZOLE
  6. METFORMIN [Concomitant]
     Active Substance: METFORMIN HYDROCHLORIDE
  7. TRAMADOL [Concomitant]
     Active Substance: TRAMADOL
  8. TAMSULOSIN [Concomitant]
     Active Substance: TAMSULOSIN
  9. Alive Calcium [Concomitant]

REACTIONS (1)
  - Fatigue [Unknown]
